FAERS Safety Report 10467675 (Version 2)
Quarter: 2015Q3

REPORT INFORMATION
  Report Type: Spontaneous
  Country: RU (occurrence: RU)
  Receive Date: 20140922
  Receipt Date: 20150928
  Transmission Date: 20151125
  Serious: Yes (Hospitalization, Other)
  Sender: FDA-Public Use
  Company Number: RU-VIIV HEALTHCARE LIMITED-B1025490A

PATIENT
  Age: 38 Year
  Sex: Male

DRUGS (6)
  1. BISEPTOL [Concomitant]
     Active Substance: SULFAMETHOXAZOLE\TRIMETHOPRIM
     Dosage: UNK
     Dates: end: 201408
  2. RITONAVIR. [Suspect]
     Active Substance: RITONAVIR
     Indication: HIV INFECTION
     Dosage: UNK
     Route: 065
     Dates: start: 20140721, end: 201411
  3. EDURANT [Suspect]
     Active Substance: RILPIVIRINE HYDROCHLORIDE
     Indication: PRODUCT USED FOR UNKNOWN INDICATION
  4. URBASON [Concomitant]
     Active Substance: METHYLPREDNISOLONE
     Indication: BILIARY DYSKINESIA
     Route: 065
     Dates: start: 2014
  5. KIVEXA [Suspect]
     Active Substance: ABACAVIR SULFATE\LAMIVUDINE
     Indication: HIV INFECTION
     Dosage: UNK
     Route: 065
     Dates: start: 20140721
  6. REYATAZ [Suspect]
     Active Substance: ATAZANAVIR SULFATE
     Indication: HIV INFECTION
     Dosage: UNK
     Route: 065
     Dates: start: 20140721, end: 201411

REACTIONS (11)
  - Lipodystrophy acquired [Unknown]
  - Bilirubin conjugated increased [Not Recovered/Not Resolved]
  - Paraesthesia [Recovering/Resolving]
  - Yellow skin [Not Recovered/Not Resolved]
  - Erythema [Recovered/Resolved]
  - Polydipsia [Unknown]
  - Laziness [Unknown]
  - Ocular icterus [Not Recovered/Not Resolved]
  - Deformity [Unknown]
  - Ocular hyperaemia [Recovered/Resolved]
  - Hospitalisation [Unknown]

NARRATIVE: CASE EVENT DATE: 201407
